FAERS Safety Report 18403494 (Version 2)
Quarter: 2021Q3

REPORT INFORMATION
  Report Type: Spontaneous
  Country: US (occurrence: US)
  Receive Date: 20201020
  Receipt Date: 20210805
  Transmission Date: 20211014
  Serious: Yes (Other)
  Sender: FDA-Public Use
  Company Number: US-SA-2020SA293152

PATIENT
  Age: 43 Year
  Sex: Male

DRUGS (2)
  1. ZANTAC [Suspect]
     Active Substance: RANITIDINE HYDROCHLORIDE
     Indication: DYSPEPSIA
  2. ZANTAC [Suspect]
     Active Substance: RANITIDINE HYDROCHLORIDE
     Indication: GASTROOESOPHAGEAL REFLUX DISEASE
     Dosage: 25 MG:OTHER
     Dates: start: 198601, end: 202001

REACTIONS (3)
  - Colorectal cancer [Unknown]
  - Hernia [Unknown]
  - Skin cancer [Unknown]

NARRATIVE: CASE EVENT DATE: 20050101
